FAERS Safety Report 9419588 (Version 1)
Quarter: 2013Q3

REPORT INFORMATION
  Report Type: Spontaneous
  Country: SE (occurrence: SE)
  Receive Date: 20130725
  Receipt Date: 20130725
  Transmission Date: 20140515
  Serious: Yes (Other)
  Sender: FDA-Public Use
  Company Number: SE-PFIZER INC-2013206895

PATIENT
  Age: 75 Year
  Sex: Female

DRUGS (1)
  1. DETRUSITOL [Suspect]
     Dosage: 1 MG, 1X/DAY

REACTIONS (2)
  - Hypoaesthesia [Unknown]
  - Bradyphrenia [Unknown]
